FAERS Safety Report 4881796-1 (Version None)
Quarter: 2006Q1

REPORT INFORMATION
  Report Type: 
  Country: None (occurrence: None)
  Receive Date: 20060112
  Receipt Date: 20060112
  Transmission Date: 20060701
  Serious: No
  Sender: FDA-Public Use
  Company Number: None

PATIENT
  Sex: Female
  Weight: 104.3273 kg

DRUGS (2)
  1. PAXIL [Suspect]
     Indication: ANXIETY
     Dosage: 30 MG DAILY PO
     Route: 048
     Dates: start: 20050501, end: 20060117
  2. PAXIL [Suspect]
     Indication: PANIC ATTACK
     Dosage: 30 MG DAILY PO
     Route: 048
     Dates: start: 20050501, end: 20060117

REACTIONS (21)
  - ABDOMINAL PAIN UPPER [None]
  - AMNESIA [None]
  - ANXIETY [None]
  - DIARRHOEA [None]
  - DISTURBANCE IN ATTENTION [None]
  - DIZZINESS [None]
  - DRUG WITHDRAWAL SYNDROME [None]
  - HEADACHE [None]
  - IMPAIRED WORK ABILITY [None]
  - INSOMNIA [None]
  - LOSS OF CONSCIOUSNESS [None]
  - MYALGIA [None]
  - NIGHT SWEATS [None]
  - NIGHTMARE [None]
  - PAIN [None]
  - PARAESTHESIA [None]
  - PARANOIA [None]
  - RASH [None]
  - SYNCOPE [None]
  - UNEMPLOYMENT [None]
  - UNEVALUABLE EVENT [None]
